FAERS Safety Report 8512432 (Version 4)
Quarter: 2016Q2

REPORT INFORMATION
  Report Type: Spontaneous
  Country: US (occurrence: US)
  Receive Date: 20120413
  Receipt Date: 20160628
  Transmission Date: 20160815
  Serious: No
  Sender: FDA-Public Use
  Company Number: US-ASTRAZENECA-2011SE47734

PATIENT
  Age: 56 Year
  Sex: Male
  Weight: 81.6 kg

DRUGS (8)
  1. SYMBICORT [Suspect]
     Active Substance: BUDESONIDE\FORMOTEROL FUMARATE DIHYDRATE
     Indication: EMPHYSEMA
     Dosage: 80/4.5 TWO PUFFS ,TWO TIMES A DAY
     Route: 055
     Dates: start: 201412
  2. NEXIUM [Suspect]
     Active Substance: ESOMEPRAZOLE MAGNESIUM
     Indication: GASTROOESOPHAGEAL REFLUX DISEASE
     Route: 048
     Dates: start: 2000
  3. DIOVAN HCT [Concomitant]
     Active Substance: HYDROCHLOROTHIAZIDE\VALSARTAN
     Indication: BLOOD PRESSURE ABNORMAL
     Dosage: 160-12.5MG,DAILY, GENERIC
     Route: 048
  4. SYMBICORT [Suspect]
     Active Substance: BUDESONIDE\FORMOTEROL FUMARATE DIHYDRATE
     Indication: CHRONIC OBSTRUCTIVE PULMONARY DISEASE
     Dosage: 80/4.5 TWO PUFFS ,TWO TIMES A DAY
     Route: 055
     Dates: start: 201412
  5. LYRICA [Concomitant]
     Active Substance: PREGABALIN
     Indication: PAIN
     Dosage: LYRICA WAS ONE 50MG TABLET IN THE MORNING AND TWO 50MG TABLETS IN THE EVENING
     Route: 048
  6. VITAMINS [Concomitant]
     Active Substance: VITAMINS
  7. NEXIUM [Suspect]
     Active Substance: ESOMEPRAZOLE MAGNESIUM
     Indication: GASTROOESOPHAGEAL REFLUX DISEASE
     Route: 048
     Dates: start: 2000
  8. NORVASC [Concomitant]
     Active Substance: AMLODIPINE BESYLATE
     Indication: BLOOD PRESSURE ABNORMAL
     Route: 048

REACTIONS (12)
  - Osteopenia [Not Recovered/Not Resolved]
  - Dyspnoea [Unknown]
  - Drug dose omission [Unknown]
  - Gastrooesophageal reflux disease [Unknown]
  - Throat irritation [Unknown]
  - Dyspepsia [Unknown]
  - Speech disorder [Not Recovered/Not Resolved]
  - Vocal cord disorder [Unknown]
  - Intentional product misuse [Unknown]
  - Incorrect drug administration duration [Unknown]
  - Discomfort [Unknown]
  - Feeling abnormal [Unknown]

NARRATIVE: CASE EVENT DATE: 2001
